FAERS Safety Report 10100457 (Version 3)
Quarter: 2014Q2

REPORT INFORMATION
  Report Type: Report from Study
  Country: CA (occurrence: CA)
  Receive Date: 20140423
  Receipt Date: 20140429
  Transmission Date: 20141212
  Serious: Yes (Other)
  Sender: FDA-Public Use
  Company Number: CA-JNJFOC-20140207230

PATIENT
  Age: 53 Year
  Sex: Female
  Weight: 75.6 kg

DRUGS (5)
  1. REMICADE [Suspect]
     Indication: GRANULOMA ANNULARE
     Route: 042
     Dates: end: 20140114
  2. REMICADE [Suspect]
     Indication: GRANULOMA ANNULARE
     Route: 042
     Dates: start: 20140226
  3. REMICADE [Suspect]
     Indication: GRANULOMA ANNULARE
     Route: 042
     Dates: start: 20130522
  4. ASA [Concomitant]
     Route: 048
  5. EFFEXOR XR [Concomitant]
     Route: 065

REACTIONS (5)
  - Arthritis [Unknown]
  - Myalgia [Unknown]
  - Arthralgia [Unknown]
  - Musculoskeletal stiffness [Unknown]
  - Off label use [Unknown]
